FAERS Safety Report 8935314 (Version 1)
Quarter: 2012Q4

REPORT INFORMATION
  Report Type: 
  Country: SE (occurrence: SE)
  Receive Date: 20121129
  Receipt Date: 20121129
  Transmission Date: 20130627
  Serious: Yes (Other)
  Sender: FDA-Public Use
  Company Number: SE-GLAXOSMITHKLINE-B0848563A

PATIENT
  Age: 41 Year
  Sex: Female

DRUGS (3)
  1. TROBALT [Suspect]
     Indication: EPILEPSY
     Dosage: 300MG Three times per day
     Route: 065
     Dates: start: 201202
  2. LAMOTRIGINE [Concomitant]
  3. UNKNOWN MEDICATION [Concomitant]

REACTIONS (1)
  - Convulsion [Unknown]
